FAERS Safety Report 10402642 (Version 3)
Quarter: 2014Q4

REPORT INFORMATION
  Report Type: Spontaneous
  Country: US (occurrence: US)
  Receive Date: 20140822
  Receipt Date: 20141001
  Transmission Date: 20150528
  Serious: No
  Sender: FDA-Public Use
  Company Number: US-JNJFOC-20140715289

PATIENT
  Age: 32 Year
  Sex: Female
  Weight: 83.92 kg

DRUGS (5)
  1. INVEGA SUSTENNA [Suspect]
     Active Substance: PALIPERIDONE PALMITATE
     Indication: PSYCHOTIC DISORDER
     Route: 030
  2. INVEGA SUSTENNA [Suspect]
     Active Substance: PALIPERIDONE PALMITATE
     Indication: PSYCHOTIC DISORDER
     Route: 030
     Dates: start: 20140717
  3. INVEGA [Concomitant]
     Active Substance: PALIPERIDONE
     Indication: PSYCHOTIC DISORDER
     Route: 048
  4. DIVALPROEX ER (SA) [Concomitant]
     Indication: DRUG THERAPY
     Route: 065
     Dates: start: 20140620
  5. INVEGA [Concomitant]
     Active Substance: PALIPERIDONE
     Indication: PSYCHOTIC DISORDER
     Route: 048
     Dates: start: 20140702

REACTIONS (6)
  - Injection site warmth [Recovered/Resolved]
  - Drug dose omission [Not Recovered/Not Resolved]
  - Injection site erythema [Recovered/Resolved]
  - Inappropriate schedule of drug administration [Unknown]
  - Refusal of treatment by patient [Recovered/Resolved]
  - Injection site erythema [Recovered/Resolved]

NARRATIVE: CASE EVENT DATE: 20140717
